FAERS Safety Report 5748024-6 (Version None)
Quarter: 2008Q2

REPORT INFORMATION
  Report Type: 
  Country: None (occurrence: None)
  Receive Date: 20080523
  Receipt Date: 20080515
  Transmission Date: 20081010
  Serious: Yes (Other)
  Sender: FDA-Public Use
  Company Number: US-AMGEN-STX280010

PATIENT

DRUGS (1)
  1. ENBREL [Suspect]
     Indication: ARTHRITIS
     Route: 058
     Dates: start: 20000401

REACTIONS (4)
  - HYPOAESTHESIA [None]
  - PAIN [None]
  - SWELLING [None]
  - VASCULAR OCCLUSION [None]
